FAERS Safety Report 5961729-7 (Version None)
Quarter: 2008Q4

REPORT INFORMATION
  Report Type: 
  Country: None (occurrence: None)
  Receive Date: 20081121
  Receipt Date: 20081029
  Transmission Date: 20090506
  Serious: Yes (Hospitalization, Other)
  Sender: FDA-Public Use
  Company Number: PHBS2003FR08779

PATIENT
  Sex: Female
  Weight: 65 kg

DRUGS (16)
  1. PARLODEL [Suspect]
     Indication: PARKINSON'S DISEASE
     Dosage: PROGRESSIVE DOSE INCREASE TO 20 MG TWICE DAILY
     Route: 048
     Dates: start: 19961220
  2. PARLODEL [Suspect]
     Dosage: 5 MG, TID
     Dates: start: 19981008
  3. PARLODEL [Suspect]
     Dosage: 10 MG, TID
     Dates: start: 19991012, end: 20010808
  4. PARLODEL [Suspect]
     Dosage: 47.5 MG
     Dates: start: 20010808
  5. PARLODEL [Suspect]
     Dosage: 35 MG
     Dates: start: 20030203
  6. MODOPAR [Suspect]
     Dosage: 125 MG, TID
     Dates: start: 19990101, end: 20010101
  7. MODOPAR [Suspect]
     Dosage: 62.5 MG, BID
     Dates: start: 19991012
  8. MODOPAR [Suspect]
     Dosage: 125 LP
  9. SINEMET [Concomitant]
     Dosage: 100
  10. SINEMET [Concomitant]
     Dosage: 100/25 LP
  11. REQUIP [Concomitant]
  12. RIVOTRIL [Concomitant]
     Dosage: 6 MG/DAY
     Route: 048
     Dates: start: 20010101, end: 20020101
  13. FLUVOXAMINE MALEATE [Concomitant]
     Dosage: 200 MG/DAY
     Route: 048
     Dates: start: 20020111, end: 20041201
  14. SELEGILINE HCL [Concomitant]
  15. ATHYMIL [Concomitant]
     Indication: DEPRESSION
     Dosage: 30 MG/DAY
     Dates: start: 20010808
  16. STILNOX                                 /FRA/ [Concomitant]
     Dosage: UNK
     Dates: start: 20020101

REACTIONS (10)
  - BRONCHITIS [None]
  - COUGH [None]
  - DEPRESSION [None]
  - DYSPNOEA [None]
  - GENERAL PHYSICAL HEALTH DETERIORATION [None]
  - HYPOMANIA [None]
  - OEDEMA PERIPHERAL [None]
  - PATHOLOGICAL GAMBLING [None]
  - PLEURAL EFFUSION [None]
  - PYREXIA [None]
